FAERS Safety Report 5678106-9 (Version None)
Quarter: 2008Q1

REPORT INFORMATION
  Report Type: 
  Country: None (occurrence: None)
  Receive Date: 20080319
  Receipt Date: 20080303
  Transmission Date: 20080703
  Serious: Yes (Other)
  Sender: FDA-Public Use
  Company Number: 8020942

PATIENT
  Age: 52 Year
  Sex: Female

DRUGS (1)
  1. HYDROCORTISONE 1%-P CREAM [Suspect]
     Indication: DERMATITIS CONTACT
     Dosage: TOP
     Route: 061

REACTIONS (2)
  - SKIN ATROPHY [None]
  - SKIN FISSURES [None]
